FAERS Safety Report 4277444-4 (Version None)
Quarter: 2004Q1

REPORT INFORMATION
  Report Type: 
  Country: None (occurrence: None)
  Receive Date: 20040122
  Receipt Date: 20040109
  Transmission Date: 20041129
  Serious: Yes (Hospitalization)
  Sender: FDA-Public Use
  Company Number: FR-GLAXOSMITHKLINE-B0319483A

PATIENT
  Age: 37 Year
  Sex: Male
  Weight: 60 kg

DRUGS (6)
  1. ONDANSETRON HCL [Suspect]
     Route: 048
     Dates: start: 20031118
  2. MOTILIUM [Suspect]
     Route: 048
     Dates: start: 20031118
  3. CAELYX [Suspect]
     Indication: KAPOSI'S SARCOMA
     Dosage: 35MG SINGLE DOSE
     Route: 042
     Dates: start: 20031118, end: 20031118
  4. ZIAGEN [Concomitant]
     Dosage: 300MG TWICE PER DAY
     Route: 048
     Dates: start: 20031119
  5. KALETRA [Concomitant]
     Dosage: 3UNIT TWICE PER DAY
     Route: 048
     Dates: start: 20031119
  6. VIREAD [Concomitant]
     Dosage: 245MG PER DAY
     Route: 048
     Dates: start: 20031119

REACTIONS (6)
  - ALANINE AMINOTRANSFERASE INCREASED [None]
  - ASPARTATE AMINOTRANSFERASE INCREASED [None]
  - BLOOD ALKALINE PHOSPHATASE INCREASED [None]
  - GAMMA-GLUTAMYLTRANSFERASE INCREASED [None]
  - HYPERAESTHESIA [None]
  - PAIN [None]
